FAERS Safety Report 19793335 (Version 4)
Quarter: 2021Q4

REPORT INFORMATION
  Report Type: Report from Study
  Country: CO (occurrence: CO)
  Receive Date: 20210906
  Receipt Date: 20211020
  Transmission Date: 20220303
  Serious: Yes (Hospitalization)
  Sender: FDA-Public Use
  Company Number: NVSC2021CO201168

PATIENT
  Sex: Female
  Weight: 52 kg

DRUGS (5)
  1. ILARIS [Suspect]
     Active Substance: CANAKINUMAB
     Indication: Still^s disease
     Dosage: 150 MG, QMO
     Route: 058
     Dates: start: 202006
  2. ILARIS [Suspect]
     Active Substance: CANAKINUMAB
     Dosage: UNK
     Route: 065
  3. PREDNISOLONE [Concomitant]
     Active Substance: PREDNISOLONE
     Indication: Still^s disease
     Dosage: 10 MG, QD (2 OF 5 MG)
     Route: 048
     Dates: start: 2016
  4. COLCHICINE [Concomitant]
     Active Substance: COLCHICINE
     Indication: Still^s disease
     Dosage: 0.5 MG, TID
     Route: 048
     Dates: start: 2016
  5. LEFLUNOMIDE [Concomitant]
     Active Substance: LEFLUNOMIDE
     Indication: Still^s disease
     Dosage: 20 MG, QD
     Route: 048
     Dates: start: 2017

REACTIONS (7)
  - Meningitis aseptic [Unknown]
  - Ill-defined disorder [Unknown]
  - Noninfective encephalitis [Unknown]
  - Headache [Unknown]
  - Platelet count increased [Unknown]
  - Polymerase chain reaction positive [Unknown]
  - Intervertebral disc protrusion [Unknown]
